FAERS Safety Report 5515737-0 (Version None)
Quarter: 2007Q4

REPORT INFORMATION
  Report Type: 
  Country: None (occurrence: None)
  Receive Date: 20071114
  Receipt Date: 20071106
  Transmission Date: 20080405
  Serious: Yes (Other)
  Sender: FDA-Public Use
  Company Number: PHEH2007US14559

PATIENT
  Age: 57 Year
  Sex: Female

DRUGS (10)
  1. TEGRETOL [Suspect]
     Dates: start: 20040301
  2. BACLOFEN [Suspect]
     Indication: DIABETIC NEUROPATHY
     Route: 048
     Dates: start: 20071019, end: 20071025
  3. AMBIEN [Concomitant]
     Dates: start: 20060101
  4. ACETYLSALICYLIC ACID SRT [Concomitant]
     Dosage: 325 MG, UNK
     Dates: start: 20040101
  5. BENICAR [Concomitant]
     Dosage: 40 MG, UNK
     Dates: start: 20060101
  6. CARDURA                                 /IRE/ [Concomitant]
     Dosage: 10 MG, UNK
  7. DALIVIT [Concomitant]
     Dates: start: 20060101
  8. EPOGEN [Concomitant]
  9. LANTUS [Concomitant]
  10. ZOCOR [Concomitant]
     Dosage: 40 MG, UNK
     Dates: start: 20070901

REACTIONS (6)
  - BLOOD GLUCOSE INCREASED [None]
  - DRUG INTERACTION [None]
  - FALL [None]
  - MYOCLONUS [None]
  - SEDATION [None]
  - SOMNOLENCE [None]
